FAERS Safety Report 4510366-X (Version None)
Quarter: 2004Q4

REPORT INFORMATION
  Report Type: 
  Country: None (occurrence: None)
  Receive Date: 20041122
  Receipt Date: 20041115
  Transmission Date: 20050328
  Serious: Yes (Other)
  Sender: FDA-Public Use
  Company Number: 200315016BWH

PATIENT
  Age: 37 Year
  Sex: Female
  Weight: 74.8435 kg

DRUGS (13)
  1. MOXIFLOXACIN IV (MOXIFLOXACIN) [Suspect]
     Indication: ABDOMINAL INFECTION
     Dosage: 400 MG, QD, INTRAVENOUS
     Route: 042
     Dates: start: 20010828, end: 20010904
  2. MOXIFLOXACIN PO (MOXIFLOXACIN) [Suspect]
     Indication: ABDOMINAL INFECTION
     Dosage: 400 MG, QD, ORAL
     Route: 048
     Dates: start: 20010904, end: 20010906
  3. PEPCID [Concomitant]
  4. PROPOFOL [Concomitant]
  5. VECURONIUM [Concomitant]
  6. FENTANYL [Concomitant]
  7. LIDOCAINE 2% [Concomitant]
  8. SUCCINYL [Concomitant]
  9. DIPHENHYDRAMINE [Concomitant]
  10. ACETAMINOPHEN [Concomitant]
  11. VICODIN [Concomitant]
  12. VERSED [Concomitant]
  13. MORPHINE SULFATE [Concomitant]

REACTIONS (6)
  - ABDOMINAL ABSCESS [None]
  - DRUG INEFFECTIVE [None]
  - PAIN [None]
  - PRURITUS [None]
  - SLEEP DISORDER [None]
  - URINARY RETENTION [None]
